FAERS Safety Report 9680103 (Version 26)
Quarter: 2015Q2

REPORT INFORMATION
  Report Type: Report from Study
  Country: CA (occurrence: CA)
  Receive Date: 20131111
  Receipt Date: 20150515
  Transmission Date: 20150821
  Serious: Yes (Death, Other)
  Sender: FDA-Public Use
  Company Number: CA-ROCHE-1298309

PATIENT
  Age: 54 Year
  Sex: Female
  Weight: 54.4 kg

DRUGS (7)
  1. XELODA [Suspect]
     Active Substance: CAPECITABINE
     Indication: BREAST CANCER METASTATIC
     Route: 048
     Dates: start: 201305, end: 201309
  2. TYKERB [Suspect]
     Active Substance: LAPATINIB DITOSYLATE
     Indication: PRODUCT USED FOR UNKNOWN INDICATION
     Route: 065
     Dates: start: 201305, end: 201402
  3. DECADRON [Concomitant]
     Active Substance: DEXAMETHASONE
  4. ONDANSETRON [Concomitant]
     Active Substance: ONDANSETRON
     Route: 065
     Dates: start: 20140227
  5. HERCEPTIN [Suspect]
     Active Substance: TRASTUZUMAB
     Indication: BREAST CANCER METASTATIC
     Route: 042
     Dates: start: 200504, end: 201302
  6. KADCYLA [Suspect]
     Active Substance: ADO-TRASTUZUMAB EMTANSINE
     Indication: HER-2 POSITIVE BREAST CANCER
     Route: 042
     Dates: start: 20140306, end: 20140821
  7. TAXOTERE [Concomitant]
     Active Substance: DOCETAXEL
     Route: 065
     Dates: start: 2001, end: 2002

REACTIONS (40)
  - Death [Fatal]
  - Hepatic pain [Unknown]
  - Dry skin [Unknown]
  - Decreased appetite [Recovering/Resolving]
  - Epistaxis [Recovered/Resolved]
  - Hypoaesthesia [Not Recovered/Not Resolved]
  - Hepatic congestion [Unknown]
  - Erythema [Not Recovered/Not Resolved]
  - Enteritis infectious [Unknown]
  - Pain in extremity [Unknown]
  - Erythema [Recovered/Resolved]
  - Peripheral swelling [Not Recovered/Not Resolved]
  - Fatigue [Not Recovered/Not Resolved]
  - Platelet count decreased [Unknown]
  - Lymphadenopathy [Unknown]
  - Abdominal pain [Recovered/Resolved]
  - Monocyte count decreased [Unknown]
  - Diarrhoea [Recovered/Resolved]
  - Weight decreased [Not Recovered/Not Resolved]
  - Hyperhidrosis [Not Recovered/Not Resolved]
  - Hot flush [Not Recovered/Not Resolved]
  - Abdominal pain upper [Unknown]
  - Skin fissures [Recovering/Resolving]
  - Hepatomegaly [Unknown]
  - Nervous system disorder [Unknown]
  - Disease progression [Unknown]
  - Paraesthesia [Not Recovered/Not Resolved]
  - Aphonia [Recovered/Resolved]
  - White blood cell count decreased [Unknown]
  - Hepatic function abnormal [Not Recovered/Not Resolved]
  - Ovarian cyst [Unknown]
  - Constipation [Not Recovered/Not Resolved]
  - Hallucination, auditory [Recovered/Resolved]
  - Erythema [Not Recovered/Not Resolved]
  - Blood bilirubin increased [Unknown]
  - Gamma-glutamyltransferase increased [Unknown]
  - Fatigue [Not Recovered/Not Resolved]
  - Nasopharyngitis [Not Recovered/Not Resolved]
  - Alanine aminotransferase increased [Unknown]
  - Blood alkaline phosphatase increased [Unknown]

NARRATIVE: CASE EVENT DATE: 201305
